FAERS Safety Report 15867690 (Version 1)
Quarter: 2019Q1

REPORT INFORMATION
  Report Type: Spontaneous
  Country: FR (occurrence: FR)
  Receive Date: 20190125
  Receipt Date: 20190125
  Transmission Date: 20190417
  Serious: Yes (Hospitalization)
  Sender: FDA-Public Use
  Company Number: FR-TEVA-2019-FR-1003167

PATIENT
  Age: 69 Year
  Sex: Male

DRUGS (9)
  1. DISCOTRINE [Concomitant]
     Active Substance: NITROGLYCERIN
  2. PROCORALAN [Concomitant]
     Active Substance: IVABRADINE
  3. ADENURIC [Concomitant]
     Active Substance: FEBUXOSTAT
  4. ROCEPHINE [Concomitant]
     Active Substance: CEFTRIAXONE SODIUM
  5. PLAVIX [Concomitant]
     Active Substance: CLOPIDOGREL BISULFATE
  6. PAMIDRONATE DE SODIUM [Suspect]
     Active Substance: PAMIDRONATE DISODIUM
     Indication: HYPERCALCAEMIA
     Route: 041
     Dates: start: 20161115, end: 20161115
  7. FORADIL [Concomitant]
     Active Substance: FORMOTEROL FUMARATE
  8. SPIRIVA [Concomitant]
     Active Substance: TIOTROPIUM BROMIDE MONOHYDRATE
  9. VALSARTAN. [Concomitant]
     Active Substance: VALSARTAN

REACTIONS (1)
  - Acute kidney injury [Recovered/Resolved]

NARRATIVE: CASE EVENT DATE: 20161118
